FAERS Safety Report 5428756-X (Version None)
Quarter: 2007Q3

REPORT INFORMATION
  Report Type: 
  Country: None (occurrence: None)
  Receive Date: 20070829
  Receipt Date: 20070822
  Transmission Date: 20080115
  Serious: Yes (Life-Threatening, Other)
  Sender: FDA-Public Use
  Company Number: PHNU2007DE02756

PATIENT
  Sex: Female
  Weight: 71 kg

DRUGS (2)
  1. BETA BLOCKING AGENTS [Concomitant]
     Route: 065
  2. DESFERAL [Suspect]
     Indication: HAEMOSIDEROSIS
     Dosage: 2000 MG, QD
     Route: 065
     Dates: start: 19980101

REACTIONS (1)
  - GLOMERULONEPHRITIS MEMBRANOPROLIFERATIVE [None]
